FAERS Safety Report 4677679-2 (Version None)
Quarter: 2005Q2

REPORT INFORMATION
  Report Type: 
  Country: None (occurrence: None)
  Receive Date: 20050531
  Receipt Date: 20050519
  Transmission Date: 20051028
  Serious: Yes (Hospitalization)
  Sender: FDA-Public Use
  Company Number: ZA-BRISTOL-MYERS SQUIBB COMPANY-12974416

PATIENT
  Age: 15 Year
  Sex: Male
  Weight: 58 kg

DRUGS (2)
  1. PROZEF [Suspect]
     Indication: UPPER RESPIRATORY TRACT INFECTION
     Route: 048
     Dates: start: 20050325, end: 20050329
  2. PROZEF [Suspect]
     Indication: BRONCHITIS
     Route: 048
     Dates: start: 20050325, end: 20050329

REACTIONS (2)
  - MOUTH ULCERATION [None]
  - STEVENS-JOHNSON SYNDROME [None]
